FAERS Safety Report 10351738 (Version 2)
Quarter: 2014Q3

REPORT INFORMATION
  Report Type: Report from Study
  Country: US (occurrence: US)
  Receive Date: 20140730
  Receipt Date: 20140804
  Transmission Date: 20150326
  Serious: Yes (Other)
  Sender: FDA-Public Use
  Company Number: PHEH2014US015027

PATIENT
  Sex: Female

DRUGS (1)
  1. DIOVAN [Suspect]
     Active Substance: VALSARTAN
     Dosage: 160 MG, UNK
     Route: 048

REACTIONS (5)
  - Cardiac failure congestive [Unknown]
  - Mitral valve prolapse [Unknown]
  - Dyspnoea [Unknown]
  - Cough [Unknown]
  - Cardiac flutter [Unknown]
